FAERS Safety Report 6155909-8 (Version None)
Quarter: 2009Q2

REPORT INFORMATION
  Report Type: 
  Country: None (occurrence: None)
  Receive Date: 20090415
  Receipt Date: 20090406
  Transmission Date: 20091009
  Serious: Yes (Hospitalization, Other)
  Sender: FDA-Public Use
  Company Number: US-ELI_LILLY_AND_COMPANY-US200904001647

PATIENT
  Age: 83 Year
  Sex: Male

DRUGS (3)
  1. ALIMTA [Suspect]
     Indication: LUNG ADENOCARCINOMA
     Dosage: 450 MG/M2, UNK
     Route: 042
     Dates: start: 20090326
  2. AVASTIN [Concomitant]
     Indication: LUNG ADENOCARCINOMA
     Dates: start: 20090326
  3. CARBOPLATIN [Concomitant]
     Indication: LUNG ADENOCARCINOMA
     Dates: start: 20090326

REACTIONS (3)
  - CLOSTRIDIAL INFECTION [None]
  - RENAL FAILURE ACUTE [None]
  - RESPIRATORY FAILURE [None]
